FAERS Safety Report 13675932 (Version 1)
Quarter: 2017Q2

REPORT INFORMATION
  Report Type: Spontaneous
  Country: US (occurrence: US)
  Receive Date: 20170620
  Receipt Date: 20170620
  Transmission Date: 20170830
  Serious: Yes (Death)
  Sender: FDA-Public Use
  Company Number: None

PATIENT
  Age: 39 Year
  Sex: Female
  Weight: 78.3 kg

DRUGS (11)
  1. ARMOUR THYROID [Concomitant]
     Active Substance: THYROID, PORCINE
  2. FUROSEMIDE. [Concomitant]
     Active Substance: FUROSEMIDE
  3. LISINOPRIL. [Concomitant]
     Active Substance: LISINOPRIL
  4. SPIRONOLACTONE. [Concomitant]
     Active Substance: SPIRONOLACTONE
  5. METOPROLOL SUCCINATE ER [Concomitant]
     Active Substance: METOPROLOL SUCCINATE
  6. DEXAMETHASONE. [Concomitant]
     Active Substance: DEXAMETHASONE
  7. PROMACTA [Concomitant]
     Active Substance: ELTROMBOPAG OLAMINE
  8. NPLATE [Concomitant]
     Active Substance: ROMIPLOSTIM
  9. CALCIUM+D [Concomitant]
     Active Substance: CALCIUM\VITAMIN D
  10. RITUXAN [Suspect]
     Active Substance: RITUXIMAB
     Indication: IMMUNE THROMBOCYTOPENIC PURPURA
     Dosage: ?          OTHER FREQUENCY:WEEKLY FOR 4 WEEKS;?
     Route: 041
     Dates: start: 20170206, end: 20170227
  11. AMOXICILLIN-POT CLAVULANATE [Concomitant]
     Active Substance: AMOXICILLIN\CLAVULANATE POTASSIUM

REACTIONS (3)
  - Haemoptysis [None]
  - Respiratory failure [None]
  - Lung infiltration [None]

NARRATIVE: CASE EVENT DATE: 20170425
